FAERS Safety Report 9771051 (Version 1)
Quarter: 2013Q4

REPORT INFORMATION
  Report Type: Spontaneous
  Country: DE (occurrence: DE)
  Receive Date: 20131218
  Receipt Date: 20131218
  Transmission Date: 20140711
  Serious: Yes (Life-Threatening)
  Sender: FDA-Public Use
  Company Number: GXKR2013DE003835

PATIENT
  Sex: 0

DRUGS (1)
  1. CARBOPLATIN [Suspect]

REACTIONS (1)
  - Acute hepatic failure [Unknown]
